FAERS Safety Report 10691212 (Version 1)
Quarter: 2015Q1

REPORT INFORMATION
  Report Type: Other
  Country: GB (occurrence: GB)
  Receive Date: 20150105
  Receipt Date: 20150105
  Transmission Date: 20150720
  Serious: Yes (Other)
  Sender: FDA-Public Use
  Company Number: GB-MYLANLABS-2014M1015253

PATIENT

DRUGS (4)
  1. AMOROLFINE [Concomitant]
     Active Substance: AMOROLFINE
     Indication: ONYCHOMYCOSIS
     Dosage: UNK
     Route: 061
     Dates: start: 20130514
  2. OMEPRAZOLE. [Suspect]
     Active Substance: OMEPRAZOLE
     Indication: EPIGASTRIC DISCOMFORT
     Dosage: 20 MG, UNK
     Route: 048
     Dates: start: 20120730
  3. VENLAFAXINE [Concomitant]
     Active Substance: VENLAFAXINE HYDROCHLORIDE
     Dosage: 150 MG, QD
     Route: 048
     Dates: start: 20130424, end: 20131013
  4. VENLAFAXINE [Concomitant]
     Active Substance: VENLAFAXINE HYDROCHLORIDE
     Indication: DEPRESSION
     Dosage: 75 MG, QD
     Route: 048
     Dates: start: 20131227, end: 20140624

REACTIONS (2)
  - Elevated mood [Unknown]
  - Therapeutic response unexpected [Unknown]
